FAERS Safety Report 4427223-X (Version None)
Quarter: 2004Q3

REPORT INFORMATION
  Report Type: 
  Country: None (occurrence: None)
  Receive Date: 20040817
  Receipt Date: 20040805
  Transmission Date: 20050211
  Serious: Yes (Other)
  Sender: FDA-Public Use
  Company Number: US-JNJFOC-20040802501

PATIENT
  Age: 64 Year
  Sex: Female

DRUGS (1)
  1. INFLIXIMAB [Suspect]
     Indication: RHEUMATOID ARTHRITIS
     Route: 042

REACTIONS (6)
  - DRUG RESISTANCE [None]
  - PATHOGEN RESISTANCE [None]
  - PERICARDIAL EFFUSION [None]
  - PULMONARY TUBERCULOSIS [None]
  - TUBERCULOSIS [None]
  - WEIGHT DECREASED [None]
